FAERS Safety Report 4336878-X (Version None)
Quarter: 2004Q2

REPORT INFORMATION
  Report Type: 
  Country: None (occurrence: None)
  Receive Date: 20040408
  Receipt Date: 20040324
  Transmission Date: 20050107
  Serious: Yes (Other)
  Sender: FDA-Public Use
  Company Number: S04-USA-01561-01

PATIENT
  Age: 50 Year
  Sex: Female

DRUGS (2)
  1. THYROID TAB [Suspect]
     Indication: HYPOTHYROIDISM
     Dosage: 30 MG QD PO
     Route: 048
     Dates: start: 20021001
  2. ZYPREXA [Concomitant]

REACTIONS (4)
  - BIPOLAR DISORDER [None]
  - COMMUNICATION DISORDER [None]
  - EYE DISORDER [None]
  - SPEECH DISORDER [None]
